FAERS Safety Report 8134148-5 (Version None)
Quarter: 2012Q1

REPORT INFORMATION
  Report Type: 
  Country: None (occurrence: None)
  Receive Date: 20120213
  Receipt Date: 20120213
  Transmission Date: 20120608
  Serious: Yes (Hospitalization)
  Sender: FDA-Public Use
  Company Number: None

PATIENT
  Age: 77 Year
  Sex: Male
  Weight: 83 kg

DRUGS (1)
  1. VANCOMYCIN [Suspect]
     Indication: UPPER RESPIRATORY TRACT INFECTION
     Dosage: 1.5 GM BID IV
     Route: 042
     Dates: start: 20120122, end: 20120128

REACTIONS (5)
  - HYPOTENSION [None]
  - RENAL FAILURE ACUTE [None]
  - CONFUSIONAL STATE [None]
  - DRUG LEVEL BELOW THERAPEUTIC [None]
  - DIALYSIS [None]
